FAERS Safety Report 21000415 (Version 6)
Quarter: 2025Q3

REPORT INFORMATION
  Report Type: Report from Study
  Country: US (occurrence: US)
  Receive Date: 20220623
  Receipt Date: 20250818
  Transmission Date: 20251021
  Serious: Yes (Hospitalization, Other)
  Sender: TAKEDA
  Company Number: US-SHIRE-US201900301

PATIENT
  Age: 76 Year
  Sex: Male

DRUGS (4)
  1. TEDUGLUTIDE [Suspect]
     Active Substance: TEDUGLUTIDE
     Indication: Short-bowel syndrome
     Dosage: UNK UNK, QD
  2. TEDUGLUTIDE [Suspect]
     Active Substance: TEDUGLUTIDE
     Dosage: 2.3 MILLIGRAM, QD
     Dates: start: 20161226
  3. TEDUGLUTIDE [Suspect]
     Active Substance: TEDUGLUTIDE
     Dosage: 2.5 MILLIGRAM, QD
     Dates: start: 20170711
  4. TEDUGLUTIDE [Suspect]
     Active Substance: TEDUGLUTIDE

REACTIONS (14)
  - Abdominal pain [Unknown]
  - Fall [Recovered/Resolved]
  - Skin laceration [Recovered/Resolved]
  - Peripheral swelling [Recovering/Resolving]
  - Thrombosis [Recovering/Resolving]
  - Circulatory collapse [Unknown]
  - Blood pressure decreased [Unknown]
  - Arteriovenous fistula thrombosis [Recovered/Resolved]
  - Oesophageal ulcer [Unknown]
  - Arteriovenous fistula site complication [Recovering/Resolving]
  - Dysphagia [Recovered/Resolved]
  - Vomiting [Recovered/Resolved]
  - COVID-19 [Recovering/Resolving]
  - Oesophageal irritation [Unknown]

NARRATIVE: CASE EVENT DATE: 20210830
